FAERS Safety Report 6154259 (Version 5)
Quarter: 2015Q1

REPORT INFORMATION
  Report Type: Spontaneous
  Country: JP (occurrence: JP)
  Receive Date: 20061026
  Receipt Date: 20150213
  Transmission Date: 20150721
  Serious: Yes (Death, Hospitalization, Other)
  Sender: FDA-Public Use
  Company Number: JP-JPN-A200604449

PATIENT
  Age: 95 Year
  Sex: Female

DRUGS (19)
  1. MEVALOTIN [Concomitant]
     Active Substance: PRAVASTATIN SODIUM
     Route: 048
     Dates: end: 20061019
  2. SAWADOL [Concomitant]
     Active Substance: ISOSORBIDE DINITRATE
     Route: 062
     Dates: end: 20061018
  3. VALACICLOVIR HYDROCHLORIDE [Suspect]
     Active Substance: VALACYCLOVIR HYDROCHLORIDE
     Indication: HERPES ZOSTER
     Route: 048
     Dates: start: 20061016, end: 20061018
  4. COMELIAN [Concomitant]
     Active Substance: DILAZEP
     Route: 048
     Dates: end: 20061018
  5. NORVASC [Concomitant]
     Active Substance: AMLODIPINE BESYLATE
     Route: 048
     Dates: end: 20061018
  6. SOLULACT [Concomitant]
     Route: 041
     Dates: start: 20061019, end: 20061019
  7. PREDNISOLONE. [Concomitant]
     Active Substance: PREDNISOLONE
     Route: 048
     Dates: start: 200608, end: 20061019
  8. NU-LOTAN [Concomitant]
     Active Substance: LOSARTAN POTASSIUM
     Route: 048
     Dates: end: 20061019
  9. ALDACTONE [Concomitant]
     Active Substance: SPIRONOLACTONE
     Route: 048
     Dates: end: 20061019
  10. D-ALFA [Concomitant]
     Route: 048
     Dates: end: 20061019
  11. MECOBALAMIN [Concomitant]
     Active Substance: METHYLCOBALAMIN
     Route: 048
     Dates: start: 20061016, end: 20061018
  12. SEISHOKU [Concomitant]
     Active Substance: SODIUM CHLORIDE
     Route: 041
     Dates: start: 20061020, end: 20061023
  13. KENTAN [Concomitant]
     Route: 048
     Dates: start: 20061016, end: 20061018
  14. BAYASPIRIN [Concomitant]
     Active Substance: ASPIRIN
     Route: 048
     Dates: start: 20061019, end: 20061019
  15. LASIX [Concomitant]
     Active Substance: FUROSEMIDE
     Route: 042
     Dates: start: 20061020, end: 20061020
  16. LUCUS [Concomitant]
     Route: 048
     Dates: end: 20061019
  17. PREDNISOLONE. [Concomitant]
     Active Substance: PREDNISOLONE
     Route: 048
     Dates: start: 200108, end: 20061018
  18. NORVASC [Concomitant]
     Active Substance: AMLODIPINE BESYLATE
     Route: 048
     Dates: end: 20061019
  19. MINOMYCIN [Concomitant]
     Active Substance: MINOCYCLINE HYDROCHLORIDE
     Route: 048
     Dates: start: 20061016, end: 20061018

REACTIONS (6)
  - Acute kidney injury [Fatal]
  - Dysarthria [Not Recovered/Not Resolved]
  - Anuria [Fatal]
  - Adrenocortical steroid therapy [Fatal]
  - Mouth breathing [Unknown]
  - Shock [Fatal]

NARRATIVE: CASE EVENT DATE: 20061019
